FAERS Safety Report 6338723-X (Version None)
Quarter: 2009Q3

REPORT INFORMATION
  Report Type: 
  Country: None (occurrence: None)
  Receive Date: 20090903
  Receipt Date: 20090305
  Transmission Date: 20100115
  Serious: No
  Sender: FDA-Public Use
  Company Number: A0771874A

PATIENT
  Age: 38 Year
  Sex: Male

DRUGS (1)
  1. RELENZA [Suspect]
     Indication: DRUG USE FOR UNKNOWN INDICATION
     Dosage: 2BLS TWICE PER DAY
     Route: 055
     Dates: start: 20090301, end: 20090304

REACTIONS (2)
  - HYPOAESTHESIA [None]
  - WHITE BLOOD CELL COUNT DECREASED [None]
